FAERS Safety Report 12400317 (Version 1)
Quarter: 2016Q2

REPORT INFORMATION
  Report Type: Spontaneous
  Country: US (occurrence: US)
  Receive Date: 20160525
  Receipt Date: 20160525
  Transmission Date: 20160815
  Serious: No
  Sender: FDA-Public Use
  Company Number: US-009507513-1605USA010318

PATIENT
  Age: 14 Year
  Sex: Male

DRUGS (1)
  1. GRASTEK [Suspect]
     Active Substance: PHLEUM PRATENSE POLLEN
     Dosage: STRENGTH: 2800 BAU, DOSAGE UNKNOWN
     Route: 060

REACTIONS (1)
  - Diarrhoea [Recovered/Resolved]
